FAERS Safety Report 9570172 (Version 1)
Quarter: 2013Q3

REPORT INFORMATION
  Report Type: Spontaneous
  Country: US (occurrence: None)
  Receive Date: 20130926
  Receipt Date: 20130926
  Transmission Date: 20140515
  Serious: Yes (Disabling)
  Sender: FDA-Public Use
  Company Number: None

PATIENT
  Age: 43 Year
  Sex: Female
  Weight: 78.47 kg

DRUGS (1)
  1. CIPROFLOXACIN [Suspect]

REACTIONS (9)
  - Tinnitus [None]
  - Insomnia [None]
  - Anxiety [None]
  - Panic attack [None]
  - Confusional state [None]
  - Vision blurred [None]
  - Feeling abnormal [None]
  - Hearing impaired [None]
  - Heart rate increased [None]
